FAERS Safety Report 25202960 (Version 1)
Quarter: 2025Q2

REPORT INFORMATION
  Report Type: Spontaneous
  Country: KR (occurrence: KR)
  Receive Date: 20250416
  Receipt Date: 20250416
  Transmission Date: 20250717
  Serious: Yes (Other)
  Sender: BAYER
  Company Number: KR-BAYER-2025A050691

PATIENT
  Sex: Female

DRUGS (2)
  1. ANGELIQ [Suspect]
     Active Substance: DROSPIRENONE\ESTRADIOL
     Indication: Osteoporosis
     Route: 048
  2. ANGELIQ [Suspect]
     Active Substance: DROSPIRENONE\ESTRADIOL
     Indication: Menopause

REACTIONS (1)
  - Wrist surgery [None]

NARRATIVE: CASE EVENT DATE: 20230101
